FAERS Safety Report 16967963 (Version 5)
Quarter: 2020Q3

REPORT INFORMATION
  Report Type: Spontaneous
  Country: DE (occurrence: DE)
  Receive Date: 20191028
  Receipt Date: 20200723
  Transmission Date: 20201102
  Serious: Yes (Death, Other)
  Sender: FDA-Public Use
  Company Number: DE-ELI_LILLY_AND_COMPANY-DE201905007241

PATIENT
  Sex: Male
  Weight: 72 kg

DRUGS (40)
  1. GEMCITABINE HYDROCHLORIDE. [Suspect]
     Active Substance: GEMCITABINE HYDROCHLORIDE
     Indication: PRODUCT USED FOR UNKNOWN INDICATION
     Dosage: 234 MG, UNKNOWN
     Route: 065
     Dates: start: 20180713, end: 20180824
  2. LISINOPRIL. [Concomitant]
     Active Substance: LISINOPRIL
     Indication: CARDIOVASCULAR DISORDER
     Dosage: 5 MG, UNKNOWN
     Route: 065
     Dates: start: 20170111
  3. METOPROLOL SUCCINATE. [Concomitant]
     Active Substance: METOPROLOL SUCCINATE
     Indication: HYPERTENSION
  4. ATORVASTATIN [Concomitant]
     Active Substance: ATORVASTATIN
     Indication: HYPERCHOLESTEROLAEMIA
     Dosage: 40 MG, UNKNOWN
     Route: 065
     Dates: start: 20190709
  5. PIRETANIDE [Concomitant]
     Active Substance: PIRETANIDE
     Indication: PROPHYLAXIS
     Dosage: 3 MG, UNKNOWN
     Route: 065
  6. METOCLOPRAMIDE. [Concomitant]
     Active Substance: METOCLOPRAMIDE
     Indication: PRODUCT USED FOR UNKNOWN INDICATION
     Dosage: 1 DOSAGE FORM, PRN
     Route: 065
     Dates: start: 20180713
  7. GLUCOSE 5% BRAUN [Concomitant]
     Active Substance: DEXTROSE
     Indication: PRODUCT USED FOR UNKNOWN INDICATION
     Dosage: 500 ML, UNKNOWN
     Route: 065
     Dates: start: 20180713, end: 20180713
  8. ACETYLSALICYLIC ACID [Concomitant]
     Active Substance: ASPIRIN
     Indication: CARDIOVASCULAR DISORDER
     Dosage: 100 MG, UNKNOWN
     Route: 065
  9. METAMIZOL NATRIUM [Concomitant]
     Active Substance: METAMIZOLE SODIUM
     Indication: PRODUCT USED FOR UNKNOWN INDICATION
     Dosage: 2000 MG, UNKNOWN
     Route: 065
     Dates: start: 20190506
  10. CARBOPLATIN. [Suspect]
     Active Substance: CARBOPLATIN
     Dosage: 510 MG, UNKNOWN
     Route: 065
     Dates: start: 20180824
  11. CARBOPLATIN. [Suspect]
     Active Substance: CARBOPLATIN
     Dosage: 550 MG, UNKNOWN
     Route: 065
     Dates: start: 20180921
  12. NIVOLUMAB [Suspect]
     Active Substance: NIVOLUMAB
     Dosage: 240MG ABSOLUTE
     Route: 042
     Dates: start: 20180518, end: 20180629
  13. DEXAMETHASONE. [Concomitant]
     Active Substance: DEXAMETHASONE
     Indication: PROPHYLAXIS
     Dosage: 24 MG, UNKNOWN
     Route: 065
     Dates: start: 20180713, end: 20180713
  14. METOPROLOL SUCCINATE. [Concomitant]
     Active Substance: METOPROLOL SUCCINATE
     Indication: PROPHYLAXIS
     Dosage: 95MG, 1 DF IN THE MORNING AND 1/2 DF IN THE EVENING
     Route: 065
     Dates: start: 20190506
  15. PANTOPRAZOLE [Concomitant]
     Active Substance: PANTOPRAZOLE
     Indication: PROPHYLAXIS
     Dosage: 40 MG, UNKNOWN
     Route: 065
  16. RIVAROXABAN [Concomitant]
     Active Substance: RIVAROXABAN
     Indication: PROPHYLAXIS
     Dosage: 1 DF IN THE MORNING, SINCE AN UNKNOWN DATE IN 2016 UNTIL DATE OF DEATH
     Route: 065
     Dates: start: 2016
  17. GEMCITABINE HYDROCHLORIDE. [Suspect]
     Active Substance: GEMCITABINE HYDROCHLORIDE
     Dosage: 2356 MG, UNKNOWN
     Route: 065
     Dates: start: 20180921
  18. DIGITOXIN [Concomitant]
     Active Substance: DIGITOXIN
     Dosage: 0.07 MG, UNKNOWN
     Route: 065
     Dates: start: 20190506
  19. RIVAROXABAN [Concomitant]
     Active Substance: RIVAROXABAN
     Indication: SUBCLAVIAN VEIN THROMBOSIS
     Dosage: 201 MG, UNKNOWN
     Route: 065
  20. UNACID [AMPICILLIN SODIUM;SULBACTAM SODIUM] [Concomitant]
     Active Substance: AMPICILLIN SODIUM\SULBACTAM SODIUM
     Dosage: 2 DF IN THE MORNING AND 2 DF IN THE EVENING
     Route: 048
     Dates: start: 20190823
  21. ALLOPURINOL. [Concomitant]
     Active Substance: ALLOPURINOL
     Indication: HYPERURICAEMIA
     Dosage: 300MG, 1/2 DF IN THE MORNING, SINCE AN UNKNOWN DATE UNTIL DATE OF DEATH
     Route: 065
     Dates: start: 20190506
  22. SODIUM CHLORIDE 0.9% [Concomitant]
     Active Substance: SODIUM CHLORIDE
     Indication: PRODUCT USED FOR UNKNOWN INDICATION
     Dosage: 350 ML, UNKNOWN
     Route: 065
     Dates: start: 20180713, end: 20180713
  23. FOSAPREPITANT [Concomitant]
     Active Substance: FOSAPREPITANT
     Indication: PROPHYLAXIS
     Dosage: 150 MG, UNKNOWN
     Route: 065
     Dates: start: 20180713, end: 20180713
  24. FENTANYL. [Concomitant]
     Active Substance: FENTANYL
     Indication: PRODUCT USED FOR UNKNOWN INDICATION
     Dosage: 0.157 MG, UNKNOWN
     Route: 065
     Dates: start: 20190506
  25. UNACID [AMPICILLIN SODIUM;SULBACTAM SODIUM] [Concomitant]
     Active Substance: AMPICILLIN SODIUM\SULBACTAM SODIUM
     Indication: PNEUMONIA
     Dosage: 1500 MG, UNKNOWN
     Route: 065
     Dates: start: 20190823, end: 20190827
  26. AMPHOTERICIN B. [Concomitant]
     Active Substance: AMPHOTERICIN B
     Indication: PRODUCT USED FOR UNKNOWN INDICATION
     Dosage: 400 MG, UNKNOWN
     Route: 065
     Dates: start: 20190823
  27. NOVAMINSULFON [Concomitant]
     Active Substance: METAMIZOLE
     Indication: ARTHRALGIA
     Dosage: UNK, 4?TIMES 2
     Route: 065
     Dates: start: 20190709
  28. CARBOPLATIN. [Suspect]
     Active Substance: CARBOPLATIN
     Dosage: 845 MG, UNKNOWN
     Route: 065
     Dates: start: 20180803, end: 20180921
  29. NIVOLUMAB [Suspect]
     Active Substance: NIVOLUMAB
     Indication: NON-SMALL CELL LUNG CANCER METASTATIC
     Dosage: 3 MG/KG, Q2WK
     Route: 042
     Dates: start: 20171212, end: 20180504
  30. ATORVASTATIN [Concomitant]
     Active Substance: ATORVASTATIN
     Indication: CARDIOVASCULAR DISORDER
     Dosage: 40 MG, UNKNOWN
     Route: 065
     Dates: start: 20171101
  31. GRANISETRON [Concomitant]
     Active Substance: GRANISETRON
     Indication: PROPHYLAXIS
     Dosage: 1 MG, UNKNOWN
     Route: 065
     Dates: start: 20180713, end: 20180713
  32. PREGABALIN. [Concomitant]
     Active Substance: PREGABALIN
     Indication: ARTHRALGIA
     Dosage: 4?TIMES 75MG
     Route: 065
     Dates: start: 20190709
  33. DIGITOXIN [Concomitant]
     Active Substance: DIGITOXIN
     Indication: CARDIOVASCULAR DISORDER
     Dosage: 0.07 MG, UNKNOWN
     Route: 065
     Dates: start: 20180920
  34. SULTAMICILLIN [SULTAMICILLIN TOSILATE] [Concomitant]
     Indication: LUNG DISORDER
     Dosage: 1500 MG, UNKNOWN
     Route: 065
     Dates: start: 20190823
  35. OXYCODONE [Concomitant]
     Active Substance: OXYCODONE
     Indication: ARTHRALGIA
     Dosage: 20/10MG, 2 DOSAGE FORMS (OF) IN THE MORNING AND 2 DF IN THE EVENING
     Route: 065
     Dates: start: 20190709
  36. CARBOPLATIN. [Suspect]
     Active Substance: CARBOPLATIN
     Indication: PRODUCT USED FOR UNKNOWN INDICATION
     Dosage: 570 MG, UNKNOWN
     Route: 065
     Dates: start: 20180713
  37. NIVOLUMAB [Suspect]
     Active Substance: NIVOLUMAB
     Dosage: 240MG ABSOLUTE
     Route: 042
     Dates: start: 20190709, end: 20190823
  38. DEXAMETHASONE. [Concomitant]
     Active Substance: DEXAMETHASONE
     Dosage: 8 MG, UNKNOWN
     Route: 065
     Dates: start: 20190716
  39. SIMVASTATIN. [Concomitant]
     Active Substance: SIMVASTATIN
     Indication: PROPHYLAXIS
     Dosage: 40 MG, UNKNOWN
     Route: 065
  40. ALLOPURINOL. [Concomitant]
     Active Substance: ALLOPURINOL
     Indication: PAIN

REACTIONS (14)
  - Malignant neoplasm progression [Not Recovered/Not Resolved]
  - Death [Fatal]
  - Vertigo [Not Recovered/Not Resolved]
  - Chest pain [Not Recovered/Not Resolved]
  - Dyspnoea [Not Recovered/Not Resolved]
  - Arthralgia [Not Recovered/Not Resolved]
  - Gastric disorder [Recovered/Resolved]
  - Pain [Not Recovered/Not Resolved]
  - Off label use [Unknown]
  - Cough [Not Recovered/Not Resolved]
  - Pneumonia [Recovering/Resolving]
  - Bacterial infection [Recovering/Resolving]
  - Candida infection [Unknown]
  - Fatigue [Not Recovered/Not Resolved]

NARRATIVE: CASE EVENT DATE: 20180709
